FAERS Safety Report 8091045-1 (Version None)
Quarter: 2012Q1

REPORT INFORMATION
  Report Type: 
  Country: None (occurrence: None)
  Receive Date: 20120128
  Receipt Date: 20110801
  Transmission Date: 20120608
  Serious: No
  Sender: FDA-Public Use
  Company Number: US-ABBOTT-11P-163-0843069-00

PATIENT
  Age: 52 Year
  Sex: Male

DRUGS (1)
  1. HUMIRA [Suspect]
     Indication: PSORIATIC ARTHROPATHY
     Route: 058
     Dates: start: 20100901

REACTIONS (4)
  - INCREASED TENDENCY TO BRUISE [None]
  - INSOMNIA [None]
  - HAEMORRHAGIC DIATHESIS [None]
  - EUPHORIC MOOD [None]
